FAERS Safety Report 5164445-7 (Version None)
Quarter: 2006Q4

REPORT INFORMATION
  Report Type: 
  Country: None (occurrence: None)
  Receive Date: 20061205
  Receipt Date: 20061124
  Transmission Date: 20070319
  Serious: Yes (Other)
  Sender: FDA-Public Use
  Company Number: GB-JNJFOC-20061105552

PATIENT
  Sex: Male

DRUGS (2)
  1. REMICADE [Suspect]
     Indication: DRUG USE FOR UNKNOWN INDICATION
     Dosage: STOPPED IN FEBRUARY - MARCH
     Route: 042
  2. AZATHIOPRINE [Concomitant]
     Route: 065

REACTIONS (1)
  - T-CELL LYMPHOMA [None]
